FAERS Safety Report 10911970 (Version 1)
Quarter: 2015Q1

REPORT INFORMATION
  Report Type: Spontaneous
  Country: GB (occurrence: None)
  Receive Date: 20150309
  Receipt Date: 20150309
  Transmission Date: 20150721
  Serious: Yes (Other)
  Sender: FDA-Public Use
  Company Number: BD-2015-0216

PATIENT

DRUGS (1)
  1. METOCLOPRAMIDE (METOCLOPRAMIDE) INJECTION, 5MG/ML [Suspect]
     Active Substance: METOCLOPRAMIDE

REACTIONS (1)
  - Delirium [None]
